FAERS Safety Report 8029375-1 (Version None)
Quarter: 2012Q1

REPORT INFORMATION
  Report Type: 
  Country: None (occurrence: None)
  Receive Date: 20120106
  Receipt Date: 20111130
  Transmission Date: 20120608
  Serious: Yes (Other)
  Sender: FDA-Public Use
  Company Number: GB-ROCHE-1018295

PATIENT
  Sex: Male
  Weight: 78.9 kg

DRUGS (6)
  1. XOLAIR [Suspect]
     Dates: start: 20110930
  2. FLUTICASONE PROPIONATE/SALMETEROL [Concomitant]
  3. CETIRIZINE [Concomitant]
  4. XOLAIR [Suspect]
     Indication: ASTHMA
     Route: 058
  5. XOLAIR [Suspect]
     Route: 058
  6. MONTELUKAST [Concomitant]

REACTIONS (4)
  - VITAL CAPACITY DECREASED [None]
  - PEAK EXPIRATORY FLOW RATE DECREASED [None]
  - INCORRECT DOSE ADMINISTERED [None]
  - FORCED EXPIRATORY VOLUME DECREASED [None]
